FAERS Safety Report 7333289-X (Version None)
Quarter: 2011Q1

REPORT INFORMATION
  Report Type: 
  Country: None (occurrence: None)
  Receive Date: 20110304
  Receipt Date: 20110221
  Transmission Date: 20110831
  Serious: Yes (Other)
  Sender: FDA-Public Use
  Company Number: IT-ELI_LILLY_AND_COMPANY-IT201102005777

PATIENT
  Sex: Female

DRUGS (3)
  1. CYMBALTA [Suspect]
     Route: 048
  2. ZYPREXA [Suspect]
     Indication: PERSONALITY DISORDER
     Dosage: 50 MG, UNK
     Route: 048
     Dates: start: 20100621, end: 20100621
  3. XANAX [Concomitant]
     Dosage: 1.5 MG, UNK
     Route: 048

REACTIONS (3)
  - DRUG ABUSE [None]
  - OFF LABEL USE [None]
  - OVERDOSE [None]
